FAERS Safety Report 6775346-2 (Version None)
Quarter: 2010Q2

REPORT INFORMATION
  Report Type: 
  Country: None (occurrence: None)
  Receive Date: 20100615
  Receipt Date: 20100615
  Transmission Date: 20101027
  Serious: Yes (Life-Threatening)
  Sender: FDA-Public Use
  Company Number: None

PATIENT
  Age: 58 Year
  Sex: Male
  Weight: 125 kg

DRUGS (2)
  1. TIKOSYN [Suspect]
     Indication: ATRIAL FIBRILLATION
     Dosage: TIKOSYN 500 MCG X1 DOSE PO
     Route: 048
     Dates: start: 20100608, end: 20100608
  2. TIKOSYN [Suspect]
     Dosage: TIKOSYN 250 MCG X1 DOSE PO
     Route: 048
     Dates: start: 20100609, end: 20100609

REACTIONS (2)
  - ELECTROCARDIOGRAM QT PROLONGED [None]
  - TORSADE DE POINTES [None]
